FAERS Safety Report 19787935 (Version 3)
Quarter: 2025Q4

REPORT INFORMATION
  Report Type: Spontaneous
  Country: EU (occurrence: EU)
  Receive Date: 20210903
  Receipt Date: 20251209
  Transmission Date: 20260118
  Serious: Yes (Other)
  Sender: MYLAN
  Company Number: EU-TAKEDA-2021TEU002892

PATIENT
  Sex: Male
  Weight: 125 kg

DRUGS (25)
  1. METFORMIN [Suspect]
     Active Substance: METFORMIN HYDROCHLORIDE
     Indication: Type 2 diabetes mellitus
     Dosage: 2 GRAM, QD (1 GRAM, BID)
  2. METFORMIN [Suspect]
     Active Substance: METFORMIN HYDROCHLORIDE
     Indication: Dyslipidaemia
     Dosage: 1000 MILLIGRAM, QOD (1 DF)
  3. METFORMIN [Suspect]
     Active Substance: METFORMIN HYDROCHLORIDE
     Indication: Hypertension
     Dosage: 1 GRAM, QD
  4. METFORMIN [Suspect]
     Active Substance: METFORMIN HYDROCHLORIDE
     Indication: Gout
  5. SIMVASTATIN [Suspect]
     Active Substance: SIMVASTATIN
     Indication: Gout
     Dosage: 40 MILLIGRAM, QD
  6. SIMVASTATIN [Suspect]
     Active Substance: SIMVASTATIN
     Indication: Type 2 diabetes mellitus
     Dosage: 1 DOSAGE FORM, QD
  7. SIMVASTATIN [Suspect]
     Active Substance: SIMVASTATIN
     Indication: Hypertension
  8. SIMVASTATIN [Suspect]
     Active Substance: SIMVASTATIN
     Indication: Dyslipidaemia
  9. AMLODIPINE [Suspect]
     Active Substance: AMLODIPINE BESYLATE
     Indication: Hypertension
     Dosage: 5 MILLIGRAM, QD
  10. AMLODIPINE [Suspect]
     Active Substance: AMLODIPINE BESYLATE
     Indication: Dyslipidaemia
     Dosage: 5 MILLIGRAM, BID (10 MG, QD)
  11. AMLODIPINE [Suspect]
     Active Substance: AMLODIPINE BESYLATE
     Indication: Gout
     Dosage: 1 DOSAGE FORM, QD
  12. AMLODIPINE [Suspect]
     Active Substance: AMLODIPINE BESYLATE
     Indication: Type 2 diabetes mellitus
     Dosage: 1 DOSAGE FORM, BID (1 DOSAGE FORM, QD)
  13. ENALAPRIL [Suspect]
     Active Substance: ENALAPRIL
     Indication: Hypertension
     Dosage: 20 MILLIGRAM, QD
  14. ENALAPRIL [Suspect]
     Active Substance: ENALAPRIL
     Indication: Gout
     Dosage: 1 DOSAGE FORM, QD
  15. ENALAPRIL [Suspect]
     Active Substance: ENALAPRIL
     Indication: Type 2 diabetes mellitus
  16. ENALAPRIL [Suspect]
     Active Substance: ENALAPRIL
     Indication: Dyslipidaemia
  17. ALLOPURINOL [Suspect]
     Active Substance: ALLOPURINOL
     Indication: Gout
     Dosage: 100 MILLIGRAM, QD
  18. ALLOPURINOL [Suspect]
     Active Substance: ALLOPURINOL
     Indication: Dyslipidaemia
     Dosage: 1 DOSAGE FORM, QD
  19. ALLOPURINOL [Suspect]
     Active Substance: ALLOPURINOL
     Indication: Type 2 diabetes mellitus
  20. ALLOPURINOL [Suspect]
     Active Substance: ALLOPURINOL
     Indication: Hypertension
  21. SITAGLIPTIN [Concomitant]
     Active Substance: SITAGLIPTIN
     Dosage: 10 MILLIGRAM, QD
  22. CANDESARTAN [Concomitant]
     Active Substance: CANDESARTAN
     Dosage: 16 MILLIGRAM, QD
  23. DAPAGLIFLOZIN [Concomitant]
     Active Substance: DAPAGLIFLOZIN
     Dosage: 10 MILLIGRAM, QD
  24. ETORICOXIB [Concomitant]
     Active Substance: ETORICOXIB
     Indication: Musculoskeletal pain
     Dosage: 60 MILLIGRAM, PRN
  25. ORPHENADRINE [Concomitant]
     Active Substance: ORPHENADRINE
     Indication: Musculoskeletal pain
     Dosage: UNK, QD (IN THE EVENING)

REACTIONS (6)
  - Haematochezia [Recovered/Resolved]
  - Abdominal distension [Recovered/Resolved]
  - Haemorrhoids [Recovered/Resolved]
  - Faeces discoloured [Recovered/Resolved]
  - Diarrhoea [Recovered/Resolved]
  - Flatulence [Recovered/Resolved]
